FAERS Safety Report 22339201 (Version 1)
Quarter: 2023Q2

REPORT INFORMATION
  Report Type: Spontaneous
  Country: US (occurrence: US)
  Receive Date: 20230518
  Receipt Date: 20230518
  Transmission Date: 20230721
  Serious: No
  Sender: FDA-Public Use
  Company Number: US-ADC THERAPEUTICS SA-ADC-2023-000155

PATIENT
  Age: 82 Year
  Sex: Female
  Weight: 73.469 kg

DRUGS (1)
  1. ZYNLONTA [Suspect]
     Active Substance: LONCASTUXIMAB TESIRINE-LPYL
     Indication: Diffuse large B-cell lymphoma
     Dosage: 5.7 MG, Q3WK
     Route: 042
     Dates: start: 20230130

REACTIONS (1)
  - Nausea [Not Recovered/Not Resolved]
